FAERS Safety Report 10247913 (Version 1)
Quarter: 2014Q2

REPORT INFORMATION
  Report Type: Spontaneous
  Country: US (occurrence: US)
  Receive Date: 20140619
  Receipt Date: 20140619
  Transmission Date: 20141212
  Serious: No
  Sender: FDA-Public Use
  Company Number: US-B.I. PHARMACEUTICALS,INC./RIDGEFIELD-2014-BI-26446BP

PATIENT
  Age: 64 Year
  Sex: Male

DRUGS (1)
  1. MIRAPEX [Suspect]
     Indication: RESTLESS LEGS SYNDROME
     Dosage: 0.375 MG
     Route: 048
     Dates: start: 2013, end: 2013

REACTIONS (3)
  - Condition aggravated [Not Recovered/Not Resolved]
  - Drug intolerance [Recovered/Resolved]
  - Insomnia [Unknown]
